FAERS Safety Report 25599835 (Version 1)
Quarter: 2025Q3

REPORT INFORMATION
  Report Type: Spontaneous
  Country: KR (occurrence: KR)
  Receive Date: 20250724
  Receipt Date: 20250724
  Transmission Date: 20251021
  Serious: Yes (Other)
  Sender: ORGANON
  Company Number: KR-ORGANON-O2507KOR001912

PATIENT
  Sex: Female

DRUGS (1)
  1. ETONOGESTREL [Suspect]
     Active Substance: ETONOGESTREL
     Route: 059
     Dates: start: 20250203, end: 20250317

REACTIONS (1)
  - Vaginal haemorrhage [Unknown]

NARRATIVE: CASE EVENT DATE: 20250101
